FAERS Safety Report 23027025 (Version 3)
Quarter: 2025Q2

REPORT INFORMATION
  Report Type: Report from Study
  Country: CA (occurrence: CA)
  Receive Date: 20231004
  Receipt Date: 20250418
  Transmission Date: 20250717
  Serious: Yes (Hospitalization, Other)
  Sender: JOHNSON AND JOHNSON
  Company Number: CA-JNJFOC-20230966076

PATIENT
  Sex: Female
  Weight: 86 kg

DRUGS (2)
  1. REMICADE [Suspect]
     Active Substance: INFLIXIMAB
     Indication: Crohn^s disease
     Route: 041
  2. REMICADE [Suspect]
     Active Substance: INFLIXIMAB
     Route: 041
     Dates: start: 20241218

REACTIONS (6)
  - Endometrial cancer [Unknown]
  - Ovarian cancer [Not Recovered/Not Resolved]
  - Vaginal cancer [Unknown]
  - Female genital tract fistula [Unknown]
  - Endometriosis [Unknown]
  - Radiation injury [Unknown]
